FAERS Safety Report 22651805 (Version 1)
Quarter: 2023Q2

REPORT INFORMATION
  Report Type: Spontaneous
  Country: US (occurrence: US)
  Receive Date: 20230628
  Receipt Date: 20230628
  Transmission Date: 20230721
  Serious: No
  Sender: FDA-Public Use
  Company Number: US-CTI BIOPHARMA-2023US03631

PATIENT

DRUGS (5)
  1. VONJO [Suspect]
     Active Substance: PACRITINIB
     Indication: Marrow hyperplasia
     Dosage: 200 MG, BID
     Route: 048
     Dates: start: 20230314
  2. SIMVASTATIN [Concomitant]
     Active Substance: SIMVASTATIN
  3. HYDROXYUREA [Concomitant]
     Active Substance: HYDROXYUREA
  4. PANTOPRAZOLE [Concomitant]
     Active Substance: PANTOPRAZOLE
  5. ELIQUIS [Concomitant]
     Active Substance: APIXABAN

REACTIONS (8)
  - Hordeolum [Not Recovered/Not Resolved]
  - Transfusion [Unknown]
  - Cellulitis [Unknown]
  - Fungal infection [Unknown]
  - Dysphagia [Unknown]
  - Limb discomfort [Unknown]
  - Fall [Unknown]
  - Dizziness [Unknown]
